FAERS Safety Report 7884517-3 (Version None)
Quarter: 2011Q4

REPORT INFORMATION
  Report Type: 
  Country: None (occurrence: None)
  Receive Date: 20111102
  Receipt Date: 20111027
  Transmission Date: 20120403
  Serious: Yes (Hospitalization)
  Sender: FDA-Public Use
  Company Number: US-ABBOTT-11P-163-0869553-00

PATIENT
  Sex: Female

DRUGS (4)
  1. HUMIRA [Suspect]
     Indication: CROHN'S DISEASE
     Dates: start: 20110501, end: 20110601
  2. HUMIRA [Suspect]
     Dosage: TWO 40MG DOSES IN ONE WEEK
     Dates: start: 20110722, end: 20110801
  3. MERCAPTOPURINE [Concomitant]
     Indication: PRODUCT USED FOR UNKNOWN INDICATION
  4. HUMIRA [Suspect]
     Dates: start: 20110601, end: 20110722

REACTIONS (5)
  - DRUG INEFFECTIVE [None]
  - CROHN'S DISEASE [None]
  - PERIPHERAL EMBOLISM [None]
  - LUPUS-LIKE SYNDROME [None]
  - RASH [None]
